FAERS Safety Report 6826305-2 (Version None)
Quarter: 2010Q3

REPORT INFORMATION
  Report Type: 
  Country: None (occurrence: None)
  Receive Date: 20100709
  Receipt Date: 20100630
  Transmission Date: 20110219
  Serious: Yes (Death, Hospitalization)
  Sender: FDA-Public Use
  Company Number: GB-TEVA-239826ISR

PATIENT
  Age: 70 Year
  Sex: Female

DRUGS (22)
  1. AMITRIPTYLINE [Suspect]
     Indication: DEPRESSION
  2. CIPROFLOXACIN [Suspect]
     Indication: BACTERAEMIA
  3. CITALOPRAM HYDROBROMIDE [Suspect]
     Indication: DEPRESSION
  4. FUROSEMIDE [Suspect]
     Indication: HYPERTENSION
  5. METFORMIN HCL [Suspect]
     Indication: TYPE 2 DIABETES MELLITUS
     Route: 048
  6. OMEPRAZOLE [Suspect]
  7. SIMVASTATIN [Suspect]
     Indication: HYPERLIPIDAEMIA
  8. VERAPAMIL [Suspect]
     Indication: HYPERTENSION
  9. AMIKACIN [Suspect]
     Indication: BACTERAEMIA
  10. AMPICILLIN SODIUM [Suspect]
     Indication: BACTERAEMIA
  11. ACETYLSALICYLIC ACID [Suspect]
     Indication: HYPERTENSION
  12. ACETYLSALICYLIC ACID [Suspect]
     Indication: MYOCARDIAL ISCHAEMIA
  13. CEFTRIAXONE [Suspect]
     Indication: PNEUMONIA
  14. ENALAPRIL MALEATE [Suspect]
     Indication: HYPERTENSION
  15. GLIBENCLAMIDE [Suspect]
     Indication: TYPE 2 DIABETES MELLITUS
     Route: 048
  16. HYDROCORTISONE [Suspect]
     Indication: TOXIC EPIDERMAL NECROLYSIS
  17. IMMUNE GLOBULIN NOS [Suspect]
     Route: 042
  18. LEVOFLOXACIN [Suspect]
     Indication: BACTERAEMIA
  19. PIPERACILLIN [Suspect]
     Indication: BACTERAEMIA
  20. TAZOBACTAM [Suspect]
  21. THEOPHYLLINE [Suspect]
     Indication: BRONCHITIS CHRONIC
  22. VANCOMYCIN [Suspect]
     Indication: BACTERAEMIA

REACTIONS (5)
  - ACUTE RESPIRATORY DISTRESS SYNDROME [None]
  - BACTERIAL INFECTION [None]
  - HAEMORRHAGE INTRACRANIAL [None]
  - HYPOGLYCAEMIA [None]
  - TOXIC EPIDERMAL NECROLYSIS [None]
